FAERS Safety Report 17066310 (Version 1)
Quarter: 2019Q4

REPORT INFORMATION
  Report Type: Spontaneous
  Country: PE (occurrence: PE)
  Receive Date: 20191122
  Receipt Date: 20191122
  Transmission Date: 20200122
  Serious: Yes (Disabling, Other)
  Sender: FDA-Public Use
  Company Number: PE-AMGEN-PERSP2019193314

PATIENT
  Age: 65 Year
  Sex: Female

DRUGS (1)
  1. PROLIA [Suspect]
     Active Substance: DENOSUMAB
     Indication: OSTEOPOROSIS
     Dosage: 60 MILLIGRAM, CYCLICAL
     Route: 058
     Dates: start: 20181115

REACTIONS (1)
  - Foot fracture [Recovered/Resolved]

NARRATIVE: CASE EVENT DATE: 20190610
